FAERS Safety Report 4794280-0 (Version None)
Quarter: 2005Q4

REPORT INFORMATION
  Report Type: 
  Country: None (occurrence: None)
  Receive Date: 20051011
  Receipt Date: 20050929
  Transmission Date: 20060501
  Serious: Yes (Hospitalization)
  Sender: FDA-Public Use
  Company Number: FR-GLAXOSMITHKLINE-B0396330A

PATIENT
  Age: 69 Year
  Sex: Male
  Weight: 85 kg

DRUGS (3)
  1. ONDANSETRON [Suspect]
     Dosage: 1AMP CYCLIC
     Route: 042
     Dates: start: 20050808, end: 20050906
  2. DETICENE [Suspect]
     Indication: MALIGNANT MELANOMA
     Dosage: 1400MG CYCLIC
     Route: 042
     Dates: start: 20050808, end: 20050809
  3. DETICENE [Suspect]
     Dosage: 700MGM2 SINGLE DOSE
     Route: 042
     Dates: start: 20050905, end: 20050906

REACTIONS (4)
  - CHILLS [None]
  - EOSINOPHILIA [None]
  - NAUSEA [None]
  - PYREXIA [None]
